FAERS Safety Report 7692652-8 (Version None)
Quarter: 2011Q3

REPORT INFORMATION
  Report Type: 
  Country: None (occurrence: None)
  Receive Date: 20110819
  Receipt Date: 20110805
  Transmission Date: 20111222
  Serious: Yes (Other)
  Sender: FDA-Public Use
  Company Number: CH-RANBAXY-2011R1-46917

PATIENT
  Age: 78 Year
  Sex: Male

DRUGS (1)
  1. CLINDAMYCIN [Suspect]
     Indication: DENTAL IMPLANTATION
     Dosage: ONE 150MG CAPSULE
     Route: 048

REACTIONS (2)
  - RESPIRATORY DISORDER [None]
  - ASPIRATION [None]
